FAERS Safety Report 13329556 (Version 1)
Quarter: 2017Q1

REPORT INFORMATION
  Report Type: Spontaneous
  Country: US (occurrence: US)
  Receive Date: 20170313
  Receipt Date: 20170313
  Transmission Date: 20170428
  Serious: No
  Sender: FDA-Public Use
  Company Number: US-GLAXOSMITHKLINE-US2017034273

PATIENT
  Sex: Female

DRUGS (8)
  1. XANAX [Concomitant]
     Active Substance: ALPRAZOLAM
  2. INVOKANA [Concomitant]
     Active Substance: CANAGLIFLOZIN
  3. LEVOTHYROXINE. [Concomitant]
     Active Substance: LEVOTHYROXINE
  4. LASIX [Concomitant]
     Active Substance: FUROSEMIDE
  5. TANZEUM [Suspect]
     Active Substance: ALBIGLUTIDE
     Indication: DIABETES MELLITUS
     Dosage: 30 MG, U
     Route: 042
  6. LIPITOR [Concomitant]
     Active Substance: ATORVASTATIN CALCIUM
  7. LISINOPRIL. [Concomitant]
     Active Substance: LISINOPRIL
  8. METFORMIN [Concomitant]
     Active Substance: METFORMIN HYDROCHLORIDE

REACTIONS (7)
  - Device leakage [Unknown]
  - Nervousness [Recovered/Resolved]
  - Visual impairment [Unknown]
  - Product label issue [Unknown]
  - Accidental exposure to product [Unknown]
  - Device use error [Unknown]
  - Underdose [Unknown]
